FAERS Safety Report 4823487-9 (Version None)
Quarter: 2005Q4

REPORT INFORMATION
  Report Type: 
  Country: None (occurrence: None)
  Receive Date: 20051107
  Receipt Date: 20051028
  Transmission Date: 20060501
  Serious: Yes (Hospitalization, Other)
  Sender: FDA-Public Use
  Company Number: GBWYE096228OCT05

PATIENT
  Age: 5 Year
  Sex: Male

DRUGS (5)
  1. IBUPROFEN [Suspect]
     Indication: PYREXIA
     Dosage: 100 MG ONCE
  2. ACETAMINOPHEN [Suspect]
  3. CYCLOSPORINE [Concomitant]
  4. AZATHIOPRINE [Concomitant]
  5. PREDNISONE [Concomitant]

REACTIONS (3)
  - COXSACKIE VIRAL INFECTION [None]
  - DEHYDRATION [None]
  - RENAL FAILURE [None]
